FAERS Safety Report 10949978 (Version 1)
Quarter: 2015Q1

REPORT INFORMATION
  Report Type: Spontaneous
  Country: US (occurrence: None)
  Receive Date: 20150323
  Receipt Date: 20150323
  Transmission Date: 20150721
  Serious: Yes (Disabling, Other)
  Sender: FDA-Public Use
  Company Number: None

PATIENT
  Age: 41 Year
  Sex: Female
  Weight: 77.11 kg

DRUGS (5)
  1. MAGNESIUM/K [Concomitant]
  2. CYMBALTA [Concomitant]
     Active Substance: DULOXETINE HYDROCHLORIDE
  3. TURMERIC CURCUMIN EXTRACT [Concomitant]
  4. MELATONIN [Concomitant]
     Active Substance: MELATONIN
  5. CIPROFLOXACIN 250 MG [Suspect]
     Active Substance: CIPROFLOXACIN
     Indication: URINARY TRACT INFECTION
     Dosage: 1 PILL, TWICE DAILY, TAKEN BY MOUTH
     Route: 048
     Dates: start: 20111031, end: 20111106

REACTIONS (23)
  - Arthralgia [None]
  - Hypoaesthesia [None]
  - Amnesia [None]
  - Hallucination [None]
  - Tinnitus [None]
  - Fatigue [None]
  - Back pain [None]
  - Burning sensation [None]
  - Job dissatisfaction [None]
  - Pain in extremity [None]
  - Abdominal pain lower [None]
  - Visual impairment [None]
  - Hypersensitivity [None]
  - Peripheral swelling [None]
  - Balance disorder [None]
  - Insomnia [None]
  - Muscular weakness [None]
  - Restlessness [None]
  - Disturbance in attention [None]
  - Hyperacusis [None]
  - Panic attack [None]
  - Sinus disorder [None]
  - Nausea [None]

NARRATIVE: CASE EVENT DATE: 20111031
